FAERS Safety Report 17119345 (Version 2)
Quarter: 2020Q1

REPORT INFORMATION
  Report Type: Report from Study
  Country: US (occurrence: US)
  Receive Date: 20191206
  Receipt Date: 20200109
  Transmission Date: 20200409
  Serious: Yes (Other)
  Sender: FDA-Public Use
  Company Number: US-BIOGEN-2019BI00813213

PATIENT
  Age: 30 Year
  Sex: Male

DRUGS (1)
  1. TYSABRI [Suspect]
     Active Substance: NATALIZUMAB
     Indication: MULTIPLE SCLEROSIS
     Dosage: INFUSED FOR OVER 1 HOUR
     Route: 042
     Dates: start: 20180611

REACTIONS (3)
  - Gastrointestinal ulcer [Recovered/Resolved]
  - Gastric ulcer haemorrhage [Recovered/Resolved]
  - Renal mass [Unknown]

NARRATIVE: CASE EVENT DATE: 201910
